FAERS Safety Report 19020864 (Version 1)
Quarter: 2021Q1

REPORT INFORMATION
  Report Type: Report from Study
  Country: US (occurrence: US)
  Receive Date: 20210317
  Receipt Date: 20210317
  Transmission Date: 20210420
  Serious: Yes (Death, Hospitalization)
  Sender: FDA-Public Use
  Company Number: US-BAYER-2020-284571

PATIENT
  Age: 47 Year
  Sex: Female
  Weight: 55.7 kg

DRUGS (3)
  1. COPANLISIB. [Suspect]
     Active Substance: COPANLISIB
     Indication: SYNOVIAL SARCOMA
     Dosage: 120 MG
     Dates: start: 20201117, end: 20201201
  2. IPILIMUMAB [Suspect]
     Active Substance: IPILIMUMAB
     Indication: SYNOVIAL SARCOMA
     Dosage: 55.7 MG
     Dates: start: 20201117, end: 20201117
  3. NIVOLUMAB [Suspect]
     Active Substance: NIVOLUMAB
     Indication: SYNOVIAL SARCOMA
     Dosage: 480 MG
     Dates: start: 20201117, end: 20201117

REACTIONS (5)
  - Anaemia [None]
  - Pneumonitis [None]
  - Dyspnoea [None]
  - Pain [None]
  - Disease progression [Fatal]

NARRATIVE: CASE EVENT DATE: 20201211
